FAERS Safety Report 6407441-1 (Version None)
Quarter: 2009Q4

REPORT INFORMATION
  Report Type: 
  Country: None (occurrence: None)
  Receive Date: 20091020
  Receipt Date: 20091007
  Transmission Date: 20100525
  Serious: Yes (Other)
  Sender: FDA-Public Use
  Company Number: AU-ASTRAZENECA-2009SE04101

PATIENT
  Age: 0 Day
  Sex: Female
  Weight: 2.8 kg

DRUGS (4)
  1. ATACAND [Suspect]
     Indication: ESSENTIAL HYPERTENSION
     Route: 064
     Dates: start: 20020601, end: 20090626
  2. LEXAPRO [Concomitant]
     Indication: DEPRESSION
     Route: 064
  3. ELEVIT [Concomitant]
     Indication: PREGNANCY
     Route: 064
  4. INSULIN [Concomitant]
     Indication: GESTATIONAL DIABETES

REACTIONS (1)
  - RENAL FAILURE [None]
